FAERS Safety Report 5935405-0 (Version None)
Quarter: 2008Q4

REPORT INFORMATION
  Report Type: 
  Country: None (occurrence: None)
  Receive Date: 20081030
  Receipt Date: 20081017
  Transmission Date: 20090506
  Serious: Yes (Other)
  Sender: FDA-Public Use
  Company Number: CA-ELI_LILLY_AND_COMPANY-CA200810004701

PATIENT
  Age: 67 Year
  Sex: Female

DRUGS (9)
  1. FORTEO [Suspect]
     Indication: OSTEOPOROSIS
     Dosage: 20 UG, DAILY (1/D)
     Route: 058
     Dates: start: 20080514, end: 20080801
  2. FORTEO [Suspect]
     Dosage: 20 UG, DAILY (1/D)
     Route: 058
     Dates: start: 20080808
  3. SINEMET [Concomitant]
  4. COMTAN [Concomitant]
  5. MIRAPEX [Concomitant]
  6. NEURONTIN [Concomitant]
  7. PREDNISONE TAB [Concomitant]
  8. EMPRACET [Concomitant]
  9. CALTRATE PLUS [Concomitant]

REACTIONS (7)
  - FALL [None]
  - LIMB INJURY [None]
  - LOSS OF CONSCIOUSNESS [None]
  - PAIN IN EXTREMITY [None]
  - PERIPHERAL COLDNESS [None]
  - PERIPHERAL VASCULAR DISORDER [None]
  - SENSATION OF HEAVINESS [None]
